FAERS Safety Report 4971203-2 (Version None)
Quarter: 2006Q1

REPORT INFORMATION
  Report Type: 
  Country: None (occurrence: None)
  Receive Date: 20060216
  Receipt Date: 20050406
  Transmission Date: 20060701
  Serious: Yes (Hospitalization)
  Sender: FDA-Public Use
  Company Number: 200504IM000130

PATIENT
  Age: 69 Year
  Sex: Male
  Weight: 61 kg

DRUGS (16)
  1. INTERFERON GAMMA-1B [Suspect]
     Indication: IDIOPATHIC PULMONARY FIBROSIS
     Dosage: 200 UG, TIW, SUBCUTANEOUS; 200 UG, TIW, SUBCUTANEOUS
     Route: 058
     Dates: start: 20040206, end: 20050403
  2. INTERFERON GAMMA-1B [Suspect]
     Indication: IDIOPATHIC PULMONARY FIBROSIS
     Dosage: 200 UG, TIW, SUBCUTANEOUS; 200 UG, TIW, SUBCUTANEOUS
     Route: 058
     Dates: start: 20050427, end: 20050508
  3. INTERFERON GAMMA-1B [Suspect]
     Indication: IDIOPATHIC PULMONARY FIBROSIS
     Dosage: 200 UG, TIW, SUBCUTANEOUS; 200 UG, TIW, SUBCUTANEOUS
     Route: 058
     Dates: start: 20050511
  4. OMEPRAZOLE [Concomitant]
  5. ALENDRONATE SODIUM [Concomitant]
  6. PREDNISOLONE [Concomitant]
  7. CANDESARTAN [Concomitant]
  8. GTN SPRAY [Concomitant]
  9. BACTRIM DS [Concomitant]
  10. CARBOCISTEINE [Concomitant]
  11. SALBUTAMOL [Concomitant]
  12. IMDUR SR [Concomitant]
  13. OXYGEN [Concomitant]
  14. SIMVASTATIN [Concomitant]
  15. CLOPIDOGREL [Concomitant]
  16. SEREVENT ACCUHALER [Concomitant]

REACTIONS (1)
  - ACUTE MYOCARDIAL INFARCTION [None]
